FAERS Safety Report 8122939-6 (Version None)
Quarter: 2012Q1

REPORT INFORMATION
  Report Type: 
  Country: None (occurrence: None)
  Receive Date: 20120208
  Receipt Date: 20120203
  Transmission Date: 20120608
  Serious: Yes (Life-Threatening, Hospitalization, Other)
  Sender: FDA-Public Use
  Company Number: PHHY2011GB111714

PATIENT
  Age: 54 Year
  Sex: Male

DRUGS (12)
  1. ACETYLSALICYLIC ACID SRT [Concomitant]
     Dosage: 75 MG, QD
     Route: 048
  2. FUROSEMIDE [Concomitant]
     Indication: HYPERTENSION
     Dates: end: 20111209
  3. RAMIPRIL [Suspect]
     Indication: HYPERTENSION
     Route: 048
  4. RAMIPRIL [Suspect]
     Indication: ACUTE CORONARY SYNDROME
  5. OTHER THERAPEUTIC PRODUCTS/AZD6140/PLACEBO [Concomitant]
     Indication: CORONARY ARTERY DISEASE
     Route: 048
     Dates: start: 20111117, end: 20111209
  6. FUROSEMIDE [Concomitant]
     Indication: ACUTE CORONARY SYNDROME
  7. BISOPROLOL [Concomitant]
     Indication: HYPERTENSION
  8. BISOPROLOL [Concomitant]
     Indication: ACUTE CORONARY SYNDROME
  9. NITROGLYCERIN [Concomitant]
     Indication: ANGINA PECTORIS
     Route: 060
  10. METFORMIN HCL [Suspect]
     Indication: DIABETES MELLITUS
     Route: 048
     Dates: end: 20111209
  11. ATORVASTATIN [Concomitant]
     Indication: HYPERCHOLESTEROLAEMIA
  12. HEPARIN [Concomitant]
     Indication: ANTICOAGULANT THERAPY

REACTIONS (9)
  - MALAISE [None]
  - HYPOTHERMIA [None]
  - CIRCULATORY COLLAPSE [None]
  - TOXICITY TO VARIOUS AGENTS [None]
  - SEPSIS [None]
  - RENAL FAILURE ACUTE [None]
  - LACTIC ACIDOSIS [None]
  - VOMITING [None]
  - HYPOGLYCAEMIA [None]
